FAERS Safety Report 14723060 (Version 1)
Quarter: 2018Q2

REPORT INFORMATION
  Report Type: Spontaneous
  Country: NL (occurrence: NL)
  Receive Date: 20180405
  Receipt Date: 20180405
  Transmission Date: 20180711
  Serious: Yes (Congenital Anomaly)
  Sender: FDA-Public Use
  Company Number: NL-TEVA-2018-NL-877251

PATIENT
  Age: 18 Month
  Sex: Female

DRUGS (1)
  1. CICLOSPORIN [Suspect]
     Active Substance: CYCLOSPORINE
     Indication: DEFICIENCY OF THE INTERLEUKIN-36 RECEPTOR ANTAGONIST
     Dosage: 4 MG/KG/DAY FOR TWO MONTHS
     Route: 065

REACTIONS (2)
  - Deficiency of the interleukin-36 receptor antagonist [Recovered/Resolved]
  - Disease progression [Recovered/Resolved]
